FAERS Safety Report 16440311 (Version 2)
Quarter: 2019Q3

REPORT INFORMATION
  Report Type: Report from Study
  Country: BR (occurrence: BR)
  Receive Date: 20190617
  Receipt Date: 20190703
  Transmission Date: 20191004
  Serious: Yes (Hospitalization)
  Sender: FDA-Public Use
  Company Number: BR-AMREGENT-20191232

PATIENT
  Age: 62 Year
  Sex: Female
  Weight: 70 kg

DRUGS (14)
  1. ENALAPRIL [Concomitant]
     Active Substance: ENALAPRIL
     Dosage: 20 MG (10 MG, 2 IN 1 D)
     Route: 048
  2. CARVEDILOL. [Concomitant]
     Active Substance: CARVEDILOL
     Dosage: 12.5 MG (6.25 MG, 2 IN 1 D)
     Route: 048
     Dates: start: 20181026
  3. INSULIN [Concomitant]
     Active Substance: INSULIN NOS
     Dosage: 60 IU (20 IU, 3 IN 1 D)
     Route: 058
     Dates: start: 2015
  4. AEROLIN [Concomitant]
     Active Substance: ALBUTEROL
     Dosage: 100 MCG, AS REQUIRED
     Route: 065
     Dates: start: 2016
  5. FUROSEMIDE. [Concomitant]
     Active Substance: FUROSEMIDE
     Dosage: 160 MG (40 MG, 4 IN 1 D)
     Route: 042
     Dates: start: 20181212, end: 20181213
  6. HYDRALAZINE [Concomitant]
     Active Substance: HYDRALAZINE HYDROCHLORIDE
     Dosage: 100 MG (50 MG, 2 IN 1 D)
     Route: 048
  7. ACID ACETYLSALICYLIC [Concomitant]
     Active Substance: ASPIRIN
     Dosage: 100 MG (100 MG, 1 IN 1 D)
     Route: 048
     Dates: start: 2004
  8. METFORMIN [Concomitant]
     Active Substance: METFORMIN HYDROCHLORIDE
     Dosage: 1700 MG (850 MG, 2 IN 1 D)
     Route: 048
     Dates: start: 2014
  9. HYDROCHLOROTHIAZIDE. [Concomitant]
     Active Substance: HYDROCHLOROTHIAZIDE
     Dosage: 25 MG (25 MG, 1 IN 1 D)
     Route: 048
  10. ZOLPIDEM [Concomitant]
     Active Substance: ZOLPIDEM TARTRATE
     Dosage: 10 MG, AS REQUIRED
     Route: 048
     Dates: start: 20181030
  11. DIGOXINE [Concomitant]
     Active Substance: DIGOXIN
     Dosage: 0.125 MG (0.125 MG, 1 IN 1 D)
     Route: 048
     Dates: start: 20181027
  12. BECLOMETHASONE DIPROPIONATE [Concomitant]
     Active Substance: BECLOMETHASONE DIPROPIONATE
     Dosage: 500 MCG (250 MCG, 2 IN 1 D)
     Route: 065
     Dates: start: 2016
  13. FERINJECT [Suspect]
     Active Substance: FERRIC CARBOXYMALTOSE
     Dosage: 10 ML
     Route: 040
     Dates: start: 20181214, end: 20181214
  14. SIMVASTATIN. [Concomitant]
     Active Substance: SIMVASTATIN
     Dosage: 40 MG (40 MG, 1 IN 1 D)
     Route: 048
     Dates: start: 2004

REACTIONS (1)
  - Cardiac failure [Recovered/Resolved]

NARRATIVE: CASE EVENT DATE: 20190604
